FAERS Safety Report 7862172-6 (Version None)
Quarter: 2011Q4

REPORT INFORMATION
  Report Type: 
  Country: None (occurrence: None)
  Receive Date: 20111026
  Receipt Date: 20111019
  Transmission Date: 20120403
  Serious: Yes (Hospitalization)
  Sender: FDA-Public Use
  Company Number: 2011SP049408

PATIENT
  Age: 85 Year
  Sex: Female

DRUGS (3)
  1. MIRTAZAPINE [Suspect]
     Indication: DEPRESSION
     Dosage: 1 DF;QD;PO
     Route: 048
     Dates: end: 20110510
  2. LEXOMIL (BROMAZEPAM) [Suspect]
     Indication: PRODUCT USED FOR UNKNOWN INDICATION
     Dosage: 3 MG;QD;PO
     Route: 048
  3. CORDARONE [Concomitant]

REACTIONS (3)
  - ORTHOSTATIC HYPOTENSION [None]
  - VERTIGO [None]
  - FALL [None]
